FAERS Safety Report 22099798 (Version 10)
Quarter: 2024Q1

REPORT INFORMATION
  Report Type: Spontaneous
  Country: US (occurrence: US)
  Receive Date: 20230315
  Receipt Date: 20240206
  Transmission Date: 20240409
  Serious: No
  Sender: FDA-Public Use
  Company Number: US-PFIZER INC-PV202300048431

PATIENT
  Age: 44 Year
  Sex: Female
  Weight: 145.15 kg

DRUGS (3)
  1. CIBINQO [Suspect]
     Active Substance: ABROCITINIB
     Indication: Eczema
     Dosage: 100 MG, DAILY
     Route: 048
  2. CIBINQO [Suspect]
     Active Substance: ABROCITINIB
     Indication: Dermatitis
  3. CETIRIZINE [Concomitant]
     Active Substance: CETIRIZINE HYDROCHLORIDE
     Indication: Seasonal allergy
     Dosage: 10 MG, 2X/DAY
     Route: 048

REACTIONS (7)
  - Product dose omission issue [Unknown]
  - Asthma [Unknown]
  - Eczema [Unknown]
  - Dysphonia [Unknown]
  - Dyspnoea [Unknown]
  - Glycosylated haemoglobin abnormal [Unknown]
  - Illness [Unknown]
